FAERS Safety Report 8812823 (Version 1)
Quarter: 2012Q4

REPORT INFORMATION
  Report Type: 
  Country: US (occurrence: US)
  Receive Date: 20120927
  Receipt Date: 20120927
  Transmission Date: 20130627
  Serious: No
  Sender: FDA-Public Use
  Company Number: US-AMGEN-USASP2012049673

PATIENT
  Age: 35 Year
  Sex: Female
  Weight: 71.2 kg

DRUGS (5)
  1. XGEVA [Suspect]
     Indication: METASTASES TO BONE
     Dosage: 120 mg, q4wk
     Route: 058
     Dates: start: 20120403
  2. NEULASTA [Concomitant]
     Indication: CHEMOTHERAPY
     Dosage: UNK
     Dates: start: 20110902
  3. GEMCITABINE [Concomitant]
  4. ZOMETA [Concomitant]
  5. GEMZAR [Concomitant]
     Indication: BREAST CANCER
     Dosage: 1092 mg, qwk
     Route: 042
     Dates: start: 20110812

REACTIONS (1)
  - Incorrect route of drug administration [Recovering/Resolving]
